FAERS Safety Report 7707977-7 (Version None)
Quarter: 2011Q3

REPORT INFORMATION
  Report Type: 
  Country: None (occurrence: None)
  Receive Date: 20110824
  Receipt Date: 20110706
  Transmission Date: 20111222
  Serious: Yes (Hospitalization, Other)
  Sender: FDA-Public Use
  Company Number: PHHY2011IT74472

PATIENT
  Sex: Male

DRUGS (2)
  1. METHERGINE [Suspect]
  2. VITAMIN K TAB [Suspect]
     Dosage: UNK

REACTIONS (1)
  - WRONG DRUG ADMINISTERED [None]
